FAERS Safety Report 12466903 (Version 7)
Quarter: 2017Q2

REPORT INFORMATION
  Report Type: Report from Study
  Country: DE (occurrence: DE)
  Receive Date: 20160615
  Receipt Date: 20170511
  Transmission Date: 20170830
  Serious: Yes (Death, Life-Threatening, Other)
  Sender: FDA-Public Use
  Company Number: PHHY2016DE054611

PATIENT
  Sex: Female
  Weight: 49 kg

DRUGS (5)
  1. VERAPAMIL [Concomitant]
     Active Substance: VERAPAMIL HYDROCHLORIDE
     Indication: CARDIAC FAILURE
     Dosage: 80 MG, QD (1 X 1)
     Route: 065
     Dates: start: 2011
  2. BISOPROLOL [Concomitant]
     Active Substance: BISOPROLOL
     Indication: CARDIAC FAILURE
     Dosage: 5 MG, QD (1 X 1)
     Route: 065
     Dates: start: 2009
  3. AFINITOR [Suspect]
     Active Substance: EVEROLIMUS
     Indication: BREAST CANCER METASTATIC
     Dosage: 10 MG, QD
     Route: 048
     Dates: start: 20151009, end: 20160120
  4. AROMASIN [Suspect]
     Active Substance: EXEMESTANE
     Indication: BREAST CANCER METASTATIC
     Dosage: 25 MG, QD
     Route: 048
     Dates: start: 20151009, end: 20160218
  5. TPN [Concomitant]
     Active Substance: AMINO ACIDS\DEXTROSE\ELECTROLYTES NOS\SOYBEAN OIL
     Indication: PRODUCT USED FOR UNKNOWN INDICATION
     Route: 065

REACTIONS (24)
  - Atrial fibrillation [Recovering/Resolving]
  - Haemoglobin decreased [Unknown]
  - Pneumonitis [Recovering/Resolving]
  - Calcinosis [Not Recovered/Not Resolved]
  - Lung infiltration [Fatal]
  - Cardiac failure [Not Recovered/Not Resolved]
  - Oedema peripheral [Recovering/Resolving]
  - Diastolic dysfunction [Not Recovered/Not Resolved]
  - Aortic disorder [Unknown]
  - Fatigue [Unknown]
  - Thyroid adenoma [Unknown]
  - Malignant pleural effusion [Fatal]
  - Arrhythmia [Unknown]
  - Hypertension [Unknown]
  - Soft tissue swelling [Fatal]
  - Tachypnoea [Unknown]
  - Malignant neoplasm progression [Fatal]
  - Metastases to pleura [Fatal]
  - Tricuspid valve incompetence [Unknown]
  - Mitral valve incompetence [Unknown]
  - General physical health deterioration [Unknown]
  - Dyspnoea [Not Recovered/Not Resolved]
  - Malaise [Unknown]
  - Lymphangiosis carcinomatosa [Fatal]

NARRATIVE: CASE EVENT DATE: 201601
